FAERS Safety Report 7249708-3 (Version None)
Quarter: 2010Q4

REPORT INFORMATION
  Report Type: 
  Country: None (occurrence: None)
  Receive Date: 20101208
  Receipt Date: 20101122
  Transmission Date: 20110411
  Serious: Yes (Life-Threatening)
  Sender: FDA-Public Use
  Company Number: 15397946

PATIENT

DRUGS (1)
  1. PERFALGAN IV (ACETAMINOPHEN) [Suspect]
     Indication: PROCEDURAL PAIN
     Dosage: IV
     Route: 042

REACTIONS (2)
  - BRONCHOSPASM [None]
  - HYPOTENSION [None]
